FAERS Safety Report 15062117 (Version 2)
Quarter: 2020Q4

REPORT INFORMATION
  Report Type: Spontaneous
  Country: JP (occurrence: JP)
  Receive Date: 20180625
  Receipt Date: 20201127
  Transmission Date: 20210113
  Serious: Yes (Death, Hospitalization)
  Sender: FDA-Public Use
  Company Number: JP-BAUSCH-BL-2018-017513

PATIENT
  Age: 82 Year
  Sex: Male

DRUGS (2)
  1. MOVIPREP [Suspect]
     Active Substance: ASCORBIC ACID\POLYETHYLENE GLYCOL 3350\POTASSIUM CHLORIDE\SODIUM ASCORBATE\SODIUM CHLORIDE\SODIUM SULFATE
     Indication: BOWEL PREPARATION
     Route: 048
     Dates: start: 20180614, end: 20180614
  2. SODIUM PICOSULFATE [Concomitant]
     Active Substance: SODIUM PICOSULFATE
     Indication: PRODUCT USED FOR UNKNOWN INDICATION
     Dates: start: 20180613, end: 20180613

REACTIONS (9)
  - Septic shock [Fatal]
  - Colon cancer [Fatal]
  - Large intestinal stenosis [Fatal]
  - Peritonitis [Fatal]
  - Vomiting [Fatal]
  - Large intestine perforation [Fatal]
  - Abdominal distension [Fatal]
  - Abdominal pain [Fatal]
  - Ascites [Fatal]

NARRATIVE: CASE EVENT DATE: 201806
